FAERS Safety Report 14829478 (Version 3)
Quarter: 2018Q2

REPORT INFORMATION
  Report Type: Report from Study
  Country: CA (occurrence: CA)
  Receive Date: 20180430
  Receipt Date: 20180514
  Transmission Date: 20180711
  Serious: Yes (Hospitalization, Other)
  Sender: FDA-Public Use
  Company Number: CA-GLAXOSMITHKLINE-CA2018GSK074838

PATIENT
  Sex: Female

DRUGS (2)
  1. VENTOLIN [Suspect]
     Active Substance: ALBUTEROL SULFATE
     Indication: ASTHMA
     Dosage: UNK UNK, PRN
  2. MEPOLIZUMAB [Suspect]
     Active Substance: MEPOLIZUMAB
     Indication: ASTHMA
     Dosage: 100 MG, Z(MONTHLY)
     Route: 042

REACTIONS (12)
  - Ill-defined disorder [Unknown]
  - Drug effect incomplete [Unknown]
  - Cardiac failure [Unknown]
  - Haematoma [Unknown]
  - Headache [Unknown]
  - Drug dose omission [Unknown]
  - Endotracheal intubation [Unknown]
  - Asthma [Unknown]
  - Temporal arteritis [Unknown]
  - Claudication of jaw muscles [Unknown]
  - Acute kidney injury [Recovered/Resolved]
  - Fall [Unknown]
